FAERS Safety Report 20230554 (Version 1)
Quarter: 2021Q4

REPORT INFORMATION
  Report Type: Spontaneous
  Country: JP (occurrence: JP)
  Receive Date: 20211227
  Receipt Date: 20211227
  Transmission Date: 20220303
  Serious: Yes (Death, Other)
  Sender: FDA-Public Use
  Company Number: JP-SUN PHARMACEUTICAL INDUSTRIES LTD-2019R1-229411

PATIENT
  Age: 75 Year
  Sex: Female
  Weight: 47.9 kg

DRUGS (2)
  1. METHOTREXATE [Suspect]
     Active Substance: METHOTREXATE
     Indication: Rheumatoid arthritis
     Dosage: UNK (4 MG PER WEEK FOR 6 MONTHS, 6 MG PER WEEK FOR 6 MONTHS, AND 8 MG PER WEEK FOR 4 YEARS)
     Route: 065
  2. TACROLIMUS [Suspect]
     Active Substance: TACROLIMUS
     Indication: Rheumatoid arthritis
     Dosage: 1 MILLIGRAM, DAILY
     Route: 065

REACTIONS (3)
  - Angiocentric lymphoma [Fatal]
  - Pleural effusion [Fatal]
  - Plasma cell myeloma [Unknown]
